FAERS Safety Report 18012135 (Version 1)
Quarter: 2020Q3

REPORT INFORMATION
  Report Type: Spontaneous
  Country: FR (occurrence: FR)
  Receive Date: 20200713
  Receipt Date: 20200713
  Transmission Date: 20201103
  Serious: Yes (Hospitalization)
  Sender: FDA-Public Use
  Company Number: FR-SUN PHARMACEUTICAL INDUSTRIES LTD-2020RR-252984

PATIENT
  Age: 92 Year
  Sex: Male
  Weight: 69 kg

DRUGS (3)
  1. OXYNORMORO 5 MG, COMPRIME ORODISPERSIBLE [Suspect]
     Active Substance: OXYCODONE HYDROCHLORIDE
     Indication: PAIN
     Dosage: 3 DOSAGE FORM, DAILY
     Route: 048
     Dates: start: 202005, end: 20200610
  2. OXYCONTIN [Suspect]
     Active Substance: OXYCODONE HYDROCHLORIDE
     Indication: PAIN
     Dosage: 20 MILLIGRAM, DAILY
     Route: 048
  3. PREGABALIN. [Suspect]
     Active Substance: PREGABALIN
     Indication: PAIN
     Dosage: 600 MILLIGRAM, DAILY
     Route: 048
     Dates: start: 202005, end: 20200610

REACTIONS (1)
  - Drop attacks [Recovered/Resolved]

NARRATIVE: CASE EVENT DATE: 20200608
